FAERS Safety Report 7197848-X (Version None)
Quarter: 2010Q4

REPORT INFORMATION
  Report Type: 
  Country: None (occurrence: None)
  Receive Date: 20101227
  Receipt Date: 20101218
  Transmission Date: 20110411
  Serious: Yes (Death, Hospitalization)
  Sender: FDA-Public Use
  Company Number: US-ROCHE-693181

PATIENT
  Age: 76 Year
  Sex: Female
  Weight: 103 kg

DRUGS (4)
  1. BEVACIZUMAB [Suspect]
     Indication: OVARIAN EPITHELIAL CANCER
     Dosage: FREQUENCY: OVER 30-90 MINUTES, ON DAY 1 OF 21 DAYS CYCLE
     Route: 042
     Dates: start: 20090818, end: 20090818
  2. PACLITAXEL [Suspect]
     Indication: OVARIAN EPITHELIAL CANCER
     Dosage: FREQUENCY: OVER 3 HOURS ON DAY 1 OF 21 DAYS CYCLE
     Route: 042
     Dates: start: 20090818, end: 20090818
  3. CARBOPLATIN [Suspect]
     Indication: OVARIAN EPITHELIAL CANCER
     Dosage: DOSE: 5 AUC OVER 30 MINUTES ON DAY 1 OF 21 DAYS CYCLE
     Route: 042
     Dates: start: 20090818, end: 20090818
  4. DOCETAXEL [Suspect]
     Indication: OVARIAN EPITHELIAL CANCER
     Dosage: OVER 3 HOURS ON DAY 1
     Route: 042
     Dates: start: 20090818, end: 20090818

REACTIONS (2)
  - ATRIAL FIBRILLATION [None]
  - CORONARY ARTERY DISEASE [None]
